FAERS Safety Report 5217024-7 (Version None)
Quarter: 2007Q1

REPORT INFORMATION
  Report Type: 
  Country: None (occurrence: None)
  Receive Date: 20070119
  Receipt Date: 20061124
  Transmission Date: 20070707
  Serious: Yes (Hospitalization)
  Sender: FDA-Public Use
  Company Number: 12200-06-0004

PATIENT
  Age: 55 Year
  Sex: Female

DRUGS (5)
  1. FERRISELTZ [Suspect]
     Indication: CHOLANGIOGRAM
     Dosage: 600 MG P.O.
     Route: 048
     Dates: start: 20061023, end: 20061023
  2. SCOPOLAMINE BUTYLBROMIDE [Concomitant]
  3. HYDROCORTISONE SODIUM SUCCINATE [Concomitant]
  4. METOCLOPRAMIDE [Concomitant]
  5. INITIATION MEDIUM 2 [Concomitant]

REACTIONS (3)
  - DEPRESSED LEVEL OF CONSCIOUSNESS [None]
  - SHOCK [None]
  - VOMITING [None]
